FAERS Safety Report 17913320 (Version 1)
Quarter: 2020Q2

REPORT INFORMATION
  Report Type: Report from Study
  Country: DE (occurrence: DE)
  Receive Date: 20200618
  Receipt Date: 20200618
  Transmission Date: 20200714
  Serious: Yes (Other)
  Sender: FDA-Public Use
  Company Number: DE-GILEAD-2020-0472821

PATIENT
  Age: 7 Decade

DRUGS (7)
  1. GEMCITABINE. [Concomitant]
     Active Substance: GEMCITABINE
  2. FLUDARABINE [Concomitant]
     Active Substance: FLUDARABINE PHOSPHATE
  3. AXICABTAGENE CILOLEUCEL [Suspect]
     Active Substance: AXICABTAGENE CILOLEUCEL
     Indication: DIFFUSE LARGE B-CELL LYMPHOMA
     Dosage: UNK
     Route: 042
     Dates: start: 201906, end: 201906
  4. DEXAMETHASONE. [Concomitant]
     Active Substance: DEXAMETHASONE
  5. RITUXIMAB. [Concomitant]
     Active Substance: RITUXIMAB
  6. OXALIPLATIN. [Concomitant]
     Active Substance: OXALIPLATIN
  7. CYCLOPHOSPHAMIDE. [Concomitant]
     Active Substance: CYCLOPHOSPHAMIDE

REACTIONS (2)
  - Cytokine release syndrome [Unknown]
  - Immune effector cell-associated neurotoxicity syndrome [Unknown]
